FAERS Safety Report 7370711-7 (Version None)
Quarter: 2011Q1

REPORT INFORMATION
  Report Type: 
  Country: None (occurrence: None)
  Receive Date: 20110323
  Receipt Date: 20110319
  Transmission Date: 20110831
  Serious: No
  Sender: FDA-Public Use
  Company Number: US-BAYER-2011-025095

PATIENT
  Sex: Female

DRUGS (2)
  1. CLOMID [Concomitant]
  2. ASPIRIN [Suspect]
     Dosage: COUNT BOTTLE UNKNOWN
     Route: 048

REACTIONS (1)
  - NO ADVERSE EVENT [None]
